FAERS Safety Report 7622069-3 (Version None)
Quarter: 2011Q3

REPORT INFORMATION
  Report Type: 
  Country: None (occurrence: None)
  Receive Date: 20110720
  Receipt Date: 20101130
  Transmission Date: 20111222
  Serious: Yes (Other)
  Sender: FDA-Public Use
  Company Number: US-BAYER-201037904NA

PATIENT
  Age: 39 Year
  Sex: Female
  Weight: 68.027 kg

DRUGS (15)
  1. YAZ [Suspect]
     Indication: ACNE
  2. DROSPIRENONE AND ETHINYL ESTRADIOL [Suspect]
     Indication: ORAL CONTRACEPTION
  3. YASMIN [Suspect]
     Indication: ORAL CONTRACEPTION
  4. MOTRIN [Concomitant]
     Indication: HEADACHE
  5. IBUPROFEN (ADVIL) [Concomitant]
     Indication: HEADACHE
  6. ONCE A DAY [Concomitant]
     Route: 048
  7. TYLENOL-500 [Concomitant]
     Indication: PAIN
     Dosage: UNK UNK, PRN
     Route: 048
  8. YASMIN [Suspect]
     Indication: ACNE
     Dosage: UNK UNK, QD
     Dates: start: 20010101
  9. DROSPIRENONE AND ETHINYL ESTRADIOL [Suspect]
     Indication: ACNE
     Dosage: UNK UNK, QD
     Dates: start: 20090101
  10. TYLENOL SINUS [Concomitant]
     Indication: SINUSITIS
     Dosage: UNK UNK, PRN
     Route: 048
  11. BEXTRA [Concomitant]
     Indication: PAIN IN EXTREMITY
     Dosage: 20 MG, QD
     Route: 048
  12. IBUPROFEN (ADVIL) [Concomitant]
     Indication: PAIN
     Dosage: UNK UNK, PRN
     Route: 048
  13. MOTRIN [Concomitant]
     Indication: PAIN
     Dosage: UNK UNK, PRN
  14. CIPROFLOXACIN HCL [Concomitant]
     Dosage: 500 MG, BID
     Route: 048
     Dates: start: 20031024
  15. TYLENOL-500 [Concomitant]
     Indication: HEADACHE

REACTIONS (1)
  - CHOLELITHIASIS [None]
